FAERS Safety Report 16897746 (Version 3)
Quarter: 2019Q4

REPORT INFORMATION
  Report Type: Spontaneous
  Country: US (occurrence: US)
  Receive Date: 20191009
  Receipt Date: 20191022
  Transmission Date: 20200122
  Serious: Yes (Life-Threatening, Hospitalization, Other)
  Sender: FDA-Public Use
  Company Number: US-NOVOPROD-688473

PATIENT
  Age: 54 Year
  Sex: Female

DRUGS (1)
  1. NOVOLOG MIX 70/30 [Suspect]
     Active Substance: INSULIN ASPART
     Indication: DIABETES MELLITUS
     Dosage: UNK
     Route: 058
     Dates: start: 201807, end: 201907

REACTIONS (13)
  - Feeling abnormal [Unknown]
  - Myocardial infarction [Unknown]
  - Cerebrovascular accident [Unknown]
  - Blood glucose increased [Recovering/Resolving]
  - Dizziness [Recovering/Resolving]
  - Blood glucose increased [Unknown]
  - Blood glucose increased [Recovering/Resolving]
  - Glucose urine present [Unknown]
  - Malaise [Unknown]
  - Blood glucose increased [Unknown]
  - Dysarthria [Recovering/Resolving]
  - Mental impairment [Unknown]
  - Blood cholesterol increased [Unknown]

NARRATIVE: CASE EVENT DATE: 201807
